FAERS Safety Report 15456410 (Version 1)
Quarter: 2018Q4

REPORT INFORMATION
  Report Type: Report from Study
  Country: US (occurrence: US)
  Receive Date: 20181002
  Receipt Date: 20181002
  Transmission Date: 20190204
  Serious: Yes (Hospitalization, Other)
  Sender: FDA-Public Use
  Company Number: US-SA-2018SA265776

PATIENT
  Age: 58 Year
  Sex: Female

DRUGS (1)
  1. INSULIN GLARGINE [Suspect]
     Active Substance: INSULIN GLARGINE
     Indication: DIABETES MELLITUS
     Dosage: 50 U, BID
     Route: 058
     Dates: start: 2010

REACTIONS (9)
  - Cerebrovascular accident [Recovered/Resolved]
  - Limb injury [Unknown]
  - Fall [Unknown]
  - Skin ulcer [Recovered/Resolved]
  - Diabetic ketoacidosis [Recovered/Resolved]
  - Abscess limb [Recovered/Resolved]
  - Dysarthria [Recovered/Resolved]
  - Blood glucose increased [Recovered/Resolved]
  - Treatment noncompliance [Unknown]

NARRATIVE: CASE EVENT DATE: 20180731
